FAERS Safety Report 20525205 (Version 4)
Quarter: 2022Q2

REPORT INFORMATION
  Report Type: Report from Study
  Country: FR (occurrence: FR)
  Receive Date: 20220228
  Receipt Date: 20220407
  Transmission Date: 20220720
  Serious: Yes (Death, Other)
  Sender: FDA-Public Use
  Company Number: FR-GLAXOSMITHKLINE-FR2022EME034599

PATIENT
  Age: 82 Year
  Sex: Male
  Weight: 100 kg

DRUGS (18)
  1. SOTROVIMAB [Suspect]
     Active Substance: SOTROVIMAB
     Indication: COVID-19
     Dosage: 500 MG
     Route: 042
     Dates: start: 20220222, end: 20220222
  2. ALBUTEROL SULFATE [Concomitant]
     Active Substance: ALBUTEROL SULFATE
     Dosage: 100 ?G/J
     Route: 055
  3. IRBESARTAN [Concomitant]
     Active Substance: IRBESARTAN
     Dosage: 75 MG, QD
     Route: 048
  4. BISOPROLOL [Concomitant]
     Active Substance: BISOPROLOL
     Dosage: 5 MG, QD
     Route: 048
  5. KARDEGIC [Concomitant]
     Active Substance: ASPIRIN DL-LYSINE
     Dosage: 75 MG, QD
     Route: 048
  6. FUROSEMIDE [Concomitant]
     Active Substance: FUROSEMIDE
     Dosage: 500 MG/1G
     Route: 048
  7. LEVOTHYROXINE [Concomitant]
     Active Substance: LEVOTHYROXINE
     Dosage: 75 UG/D
     Route: 048
  8. CINACALCET HYDROCHLORIDE [Concomitant]
     Active Substance: CINACALCET HYDROCHLORIDE
     Dosage: 30 MG, QD
     Route: 048
  9. PANTOPRAZOLE [Concomitant]
     Active Substance: PANTOPRAZOLE
     Dosage: 20 MG, QD
     Route: 048
  10. CALCIUM POLYSTYRENE SULFONATE [Concomitant]
     Active Substance: CALCIUM POLYSTYRENE SULFONATE
     Route: 048
  11. SYMBICORT [Concomitant]
     Active Substance: BUDESONIDE\FORMOTEROL FUMARATE DIHYDRATE
     Dosage: 400/12 UG/12
     Route: 055
  12. TAHOR [Concomitant]
     Active Substance: ATORVASTATIN CALCIUM
     Dosage: 40 MG
     Route: 048
  13. CHOLECALCIFEROL [Concomitant]
     Active Substance: CHOLECALCIFEROL
     Dosage: 100000 IU (1AMP/MONTH)
     Route: 048
  14. ALFUZOSIN [Concomitant]
     Active Substance: ALFUZOSIN
  15. LEVOFLOXACIN [Concomitant]
     Active Substance: LEVOFLOXACIN
     Indication: Bronchitis
     Dosage: UNK
     Dates: start: 20220221
  16. FOLIC ACID [Concomitant]
     Active Substance: FOLIC ACID
     Dosage: 5MG, 10MG/WEEK
     Route: 048
  17. OROCAL [Concomitant]
     Dosage: 500 MG, QD
     Route: 048
  18. SOLUPRED (NOS) [Concomitant]
     Indication: Bronchitis
     Dosage: UNK
     Dates: start: 20220221

REACTIONS (4)
  - Cardio-respiratory arrest [Fatal]
  - Pulmonary embolism [Fatal]
  - Tachycardia [Unknown]
  - Muscle spasms [Unknown]

NARRATIVE: CASE EVENT DATE: 20220222
